FAERS Safety Report 23703732 (Version 1)
Quarter: 2024Q2

REPORT INFORMATION
  Report Type: Spontaneous
  Country: US (occurrence: US)
  Receive Date: 20240403
  Receipt Date: 20240403
  Transmission Date: 20240716
  Serious: No
  Sender: FDA-Public Use
  Company Number: US-Cardinal Health 414-CAHLYMPH-AE-24-8

PATIENT
  Sex: Female

DRUGS (1)
  1. LYMPHOSEEK [Suspect]
     Active Substance: TECHNETIUM TC-99M TILMANOCEPT
     Indication: Lymphatic mapping
     Route: 023
     Dates: start: 20240301, end: 20240301

REACTIONS (3)
  - Off label use [Recovered/Resolved]
  - Drug ineffective [Recovered/Resolved]
  - Radioisotope uptake increased [Recovered/Resolved]

NARRATIVE: CASE EVENT DATE: 20240301
